FAERS Safety Report 20784291 (Version 3)
Quarter: 2022Q3

REPORT INFORMATION
  Report Type: Spontaneous
  Country: GR (occurrence: GR)
  Receive Date: 20220504
  Receipt Date: 20220801
  Transmission Date: 20221026
  Serious: No
  Sender: FDA-Public Use
  Company Number: GR-PFIZER INC-202200536804

PATIENT
  Age: 16 Year
  Sex: Male
  Weight: 52 kg

DRUGS (2)
  1. GENOTROPIN [Suspect]
     Active Substance: SOMATROPIN
     Indication: Dwarfism
     Dosage: 11MG/6 DAYS
     Route: 058
     Dates: start: 202104
  2. GENOTROPIN [Suspect]
     Active Substance: SOMATROPIN
     Indication: Dwarfism
     Dosage: 11MG/6 DAYS
     Route: 058
     Dates: start: 202104

REACTIONS (2)
  - Device breakage [Unknown]
  - Device use error [Unknown]

NARRATIVE: CASE EVENT DATE: 20220406
